FAERS Safety Report 5090079-9 (Version None)
Quarter: 2006Q3

REPORT INFORMATION
  Report Type: 
  Country: None (occurrence: None)
  Receive Date: 20060828
  Receipt Date: 20060818
  Transmission Date: 20061208
  Serious: Yes (Hospitalization)
  Sender: FDA-Public Use
  Company Number: 2006UW16652

PATIENT
  Age: 39 Year
  Sex: Female
  Weight: 49.3 kg

DRUGS (2)
  1. ZOLADEX [Suspect]
     Indication: ENDOMETRIOSIS
     Dosage: 2 DOSES
     Route: 058
     Dates: start: 20030101, end: 20030101
  2. ZOLADEX [Suspect]
     Dosage: 2 DOSES
     Route: 058
     Dates: start: 20050503, end: 20051101

REACTIONS (3)
  - BLOOD CALCIUM DECREASED [None]
  - BLOOD PRESSURE INCREASED [None]
  - HYPERTENSIVE CRISIS [None]
